FAERS Safety Report 13185736 (Version 2)
Quarter: 2017Q1

REPORT INFORMATION
  Report Type: Spontaneous
  Country: JP (occurrence: JP)
  Receive Date: 20170203
  Receipt Date: 20170226
  Transmission Date: 20170428
  Serious: Yes (Hospitalization)
  Sender: FDA-Public Use
  Company Number: JP-ALLERGAN-1704037US

PATIENT
  Age: 49 Year
  Sex: Male
  Weight: 70 kg

DRUGS (6)
  1. CYANAMIDE [Suspect]
     Active Substance: CYANAMIDE
     Indication: PRODUCT USED FOR UNKNOWN INDICATION
     Dosage: 10 ML, QD
     Route: 048
     Dates: end: 20170105
  2. SUVOREXANT. [Concomitant]
     Active Substance: SUVOREXANT
     Indication: PRODUCT USED FOR UNKNOWN INDICATION
     Dosage: 20 MG, QD
     Route: 048
  3. SENNOSIDE A+B [Concomitant]
     Active Substance: SENNOSIDES A AND B
     Indication: PRODUCT USED FOR UNKNOWN INDICATION
     Dosage: 12 MG, QD
     Route: 048
  4. URSODEOXYCHOLIC ACID - BP [Suspect]
     Active Substance: URSODIOL
     Indication: PRODUCT USED FOR UNKNOWN INDICATION
     Dosage: 300 MG, QD
     Route: 048
  5. MECOBALAMIN [Concomitant]
     Active Substance: METHYLCOBALAMIN
     Indication: PRODUCT USED FOR UNKNOWN INDICATION
     Dosage: 1.5 MG, QD
     Route: 048
  6. RILMAZAFONE HYDROCHLORIDE [Concomitant]
     Active Substance: RILMAZAFONE HYDROCHLORIDE
     Indication: PRODUCT USED FOR UNKNOWN INDICATION
     Dosage: 2 MG, QD
     Route: 048

REACTIONS (1)
  - Pancytopenia [Recovered/Resolved]

NARRATIVE: CASE EVENT DATE: 20170105
